FAERS Safety Report 14762407 (Version 5)
Quarter: 2019Q1

REPORT INFORMATION
  Report Type: Spontaneous
  Country: US (occurrence: US)
  Receive Date: 20180416
  Receipt Date: 20190328
  Transmission Date: 20190417
  Serious: Yes (Hospitalization, Other)
  Sender: FDA-Public Use
  Company Number: US-BRISTOL-MYERS SQUIBB COMPANY-BMS-2018-030872

PATIENT
  Sex: Female
  Weight: 65.31 kg

DRUGS (1)
  1. ORENCIA [Suspect]
     Active Substance: ABATACEPT
     Indication: RHEUMATOID ARTHRITIS
     Dosage: 125 MG, QWK
     Route: 058
     Dates: start: 201703

REACTIONS (5)
  - Cataract [Unknown]
  - Peripheral vascular disorder [Unknown]
  - Renal disorder [Unknown]
  - Blood potassium increased [Unknown]
  - Cough [Unknown]
